FAERS Safety Report 4717922-4 (Version None)
Quarter: 2005Q3

REPORT INFORMATION
  Report Type: 
  Country: None (occurrence: None)
  Receive Date: 20050718
  Receipt Date: 20040621
  Transmission Date: 20060218
  Serious: Yes (Other)
  Sender: FDA-Public Use
  Company Number: K200400934

PATIENT
  Age: 18 Year

DRUGS (1)
  1. LEVOXYL [Suspect]

REACTIONS (1)
  - CARDIAC FAILURE [None]
